FAERS Safety Report 15491462 (Version 5)
Quarter: 2020Q2

REPORT INFORMATION
  Report Type: Report from Study
  Country: CA (occurrence: CA)
  Receive Date: 20181012
  Receipt Date: 20200603
  Transmission Date: 20200713
  Serious: Yes (Other)
  Sender: FDA-Public Use
  Company Number: CA-AUROBINDO-AUR-APL-2018-049503

PATIENT
  Age: 85 Year
  Sex: Male

DRUGS (3)
  1. CEFUROXIME. [Interacting]
     Active Substance: CEFUROXIME
     Indication: PNEUMONIA
     Dosage: UNK
     Route: 065
  2. WARFARIN [Interacting]
     Active Substance: WARFARIN
     Indication: PRODUCT USED FOR UNKNOWN INDICATION
     Dosage: UNK
     Route: 065
  3. AZITHROMYCIN ANHYDROUS. [Suspect]
     Active Substance: AZITHROMYCIN ANHYDROUS
     Indication: PNEUMONIA
     Dosage: UNK
     Route: 065

REACTIONS (5)
  - Anticoagulation drug level above therapeutic [Unknown]
  - Drug interaction [Unknown]
  - Peripheral swelling [Unknown]
  - Toxicity to various agents [Unknown]
  - Labelled drug-drug interaction medication error [Unknown]
